FAERS Safety Report 24426896 (Version 1)
Quarter: 2024Q4

REPORT INFORMATION
  Report Type: Spontaneous
  Country: US (occurrence: None)
  Receive Date: 20241010
  Receipt Date: 20241010
  Transmission Date: 20250114
  Serious: No
  Sender: Public
  Company Number: None

PATIENT
  Age: 82 Year
  Sex: Female
  Weight: 67.1 kg

DRUGS (1)
  1. ATEZOLIZUMAB\HYALURONIDASE-TQJS [Suspect]
     Active Substance: ATEZOLIZUMAB\HYALURONIDASE-TQJS
     Indication: Non-small cell lung cancer
     Dosage: OTHER FREQUENCY : EVERY THREE WEEKS.;?
     Route: 058

REACTIONS (3)
  - Dry skin [None]
  - Exfoliative rash [None]
  - Erythema [None]

NARRATIVE: CASE EVENT DATE: 20240903
